FAERS Safety Report 4618601-4 (Version None)
Quarter: 2005Q1

REPORT INFORMATION
  Report Type: 
  Country: None (occurrence: None)
  Receive Date: 20050324
  Receipt Date: 20050307
  Transmission Date: 20050727
  Serious: Yes (Disabling)
  Sender: FDA-Public Use
  Company Number: 200503IM000057

PATIENT
  Age: 48 Year
  Sex: Male
  Weight: 100.6985 kg

DRUGS (4)
  1. INFERGEN (INTERFERON ALFACON-1) [Suspect]
     Indication: HEPATITIS C
     Dosage: 9 UG, QOD, SUBCUTANEOUS
     Route: 058
     Dates: start: 20040902, end: 20041101
  2. PROTONIX [Concomitant]
  3. PROGRAF [Concomitant]
  4. RIBAVIRIN [Concomitant]

REACTIONS (5)
  - DEPRESSION [None]
  - FATIGUE [None]
  - HAEMOGLOBIN DECREASED [None]
  - MEMORY IMPAIRMENT [None]
  - NAUSEA [None]
